FAERS Safety Report 11422774 (Version 1)
Quarter: 2015Q3

REPORT INFORMATION
  Report Type: Spontaneous
  Country: DE (occurrence: DE)
  Receive Date: 20150827
  Receipt Date: 20150827
  Transmission Date: 20151125
  Serious: Yes (Life-Threatening)
  Sender: FDA-Public Use
  Company Number: DE-ASTRAZENECA-2015SE80599

PATIENT

DRUGS (1)
  1. FORXIGA [Suspect]
     Active Substance: DAPAGLIFLOZIN
     Indication: TYPE 2 DIABETES MELLITUS
     Route: 048
     Dates: start: 20140918, end: 20141103

REACTIONS (2)
  - Transitional cell carcinoma [Not Recovered/Not Resolved]
  - Balanoposthitis [Unknown]

NARRATIVE: CASE EVENT DATE: 201409
